FAERS Safety Report 6255536-8 (Version None)
Quarter: 2009Q2

REPORT INFORMATION
  Report Type: 
  Country: None (occurrence: None)
  Receive Date: 20090630
  Receipt Date: 20090622
  Transmission Date: 20091009
  Serious: Yes (Death, Other)
  Sender: FDA-Public Use
  Company Number: 2009JP002026

PATIENT
  Age: 71 Year
  Sex: Male
  Weight: 56.9 kg

DRUGS (8)
  1. SOLIFENACIN BLINDED(CODE NOT BROKEN) TABLET, UNKNOWN [Suspect]
     Indication: HYPERTONIC BLADDER
     Dosage: 2 DF, UID/QD, ORAL
     Route: 048
     Dates: start: 20090108, end: 20090401
  2. TAMSULOSIN HCL [Suspect]
     Indication: BENIGN PROSTATIC HYPERPLASIA
     Dosage: 0.2 MG,/D,  ORAL
     Route: 048
     Dates: start: 20081022, end: 20090401
  3. NSAID'S PER ORAL NOS [Concomitant]
  4. LORCAM (LORNOXICAM) TABLET [Concomitant]
  5. METHYCOBAL (MECOBALAMIN) TABLET [Concomitant]
  6. AZULENE (AZULENE) FINE GRANULE [Concomitant]
  7. PREDNISOLONE TAB [Concomitant]
  8. CARBOCAIN (MEPIVACAINE HYDROCHLORIDE) INJECTION, 1 % [Concomitant]

REACTIONS (6)
  - ACUTE LEUKAEMIA [None]
  - BACK PAIN [None]
  - GAIT DISTURBANCE [None]
  - INTERVERTEBRAL DISC PROTRUSION [None]
  - PAIN IN EXTREMITY [None]
  - SHOCK [None]
